FAERS Safety Report 8566476-3 (Version None)
Quarter: 2012Q3

REPORT INFORMATION
  Report Type: 
  Country: None (occurrence: None)
  Receive Date: 20120803
  Receipt Date: 20120720
  Transmission Date: 20120928
  Serious: Yes (Death)
  Sender: FDA-Public Use
  Company Number: US-COVIDIEN/TYCO HEALTHCARE/MALLINCKRODT-T201203004

PATIENT
  Age: 52 Year
  Sex: Male
  Weight: 62 kg

DRUGS (3)
  1. HYDROMORPHONE HYDROCHLORIDE [Suspect]
     Indication: PAIN
     Dosage: 2 MG Q 2 HR (8 MG OVER 6 HRS)
     Route: 042
  2. ZOLPIDEM [Suspect]
     Dosage: 10 MG, SINGLE
     Route: 048
  3. ISOTONIC SOLUTIONS [Concomitant]
     Dosage: UNK
     Route: 042

REACTIONS (1)
  - DEATH [None]
